FAERS Safety Report 7397481-0 (Version None)
Quarter: 2011Q2

REPORT INFORMATION
  Report Type: 
  Country: None (occurrence: None)
  Receive Date: 20110406
  Receipt Date: 20110401
  Transmission Date: 20111010
  Serious: Yes (Death, Hospitalization)
  Sender: FDA-Public Use
  Company Number: PHHY2011CA11600

PATIENT
  Sex: Female

DRUGS (2)
  1. SANDOSTATIN LAR [Suspect]
     Indication: OVARIAN CANCER
     Dosage: 20 MG, QMO
     Route: 030
     Dates: start: 20110113
  2. SANDOSTATIN LAR [Suspect]
     Dosage: 20 MG, QMO
     Route: 030
     Dates: end: 20110210

REACTIONS (6)
  - DIARRHOEA [None]
  - PNEUMONIA [None]
  - PALLIATIVE CARE [None]
  - THIRST [None]
  - FATIGUE [None]
  - FLATULENCE [None]
